FAERS Safety Report 25834842 (Version 1)
Quarter: 2025Q3

REPORT INFORMATION
  Report Type: Report from Study
  Country: US (occurrence: US)
  Receive Date: 20250923
  Receipt Date: 20250923
  Transmission Date: 20251021
  Serious: Yes (Other)
  Sender: ABBVIE
  Company Number: US-ABBVIE-6466902

PATIENT
  Sex: Female

DRUGS (1)
  1. HUMIRA [Suspect]
     Active Substance: ADALIMUMAB
     Indication: Product used for unknown indication
     Route: 058
     Dates: start: 2018

REACTIONS (9)
  - Cyst [Recovering/Resolving]
  - Blood cholesterol increased [Recovering/Resolving]
  - Hypertension [Recovering/Resolving]
  - Osteoporosis [Recovering/Resolving]
  - Neuropathy peripheral [Recovering/Resolving]
  - Osteoarthritis [Recovering/Resolving]
  - Carpal tunnel syndrome [Recovering/Resolving]
  - Fibromyalgia [Recovering/Resolving]
  - Condition aggravated [Not Recovered/Not Resolved]
